FAERS Safety Report 16089719 (Version 1)
Quarter: 2019Q1

REPORT INFORMATION
  Report Type: Spontaneous
  Country: JP (occurrence: JP)
  Receive Date: 20190319
  Receipt Date: 20190319
  Transmission Date: 20190418
  Serious: Yes (Other)
  Sender: FDA-Public Use
  Company Number: JP-ROCHE-2285473

PATIENT
  Age: 6 Year
  Sex: Male

DRUGS (2)
  1. CALONAL [Concomitant]
     Active Substance: ACETAMINOPHEN
     Indication: INFLUENZA
  2. XOFLUZA [Suspect]
     Active Substance: BALOXAVIR MARBOXIL
     Indication: INFLUENZA
     Route: 048
     Dates: start: 20190205, end: 20190205

REACTIONS (1)
  - Abnormal behaviour [Recovered/Resolved]

NARRATIVE: CASE EVENT DATE: 20190205
